FAERS Safety Report 5627194-4 (Version None)
Quarter: 2008Q1

REPORT INFORMATION
  Report Type: 
  Country: None (occurrence: None)
  Receive Date: 20080212
  Receipt Date: 20080212
  Transmission Date: 20080703
  Serious: Yes (Other)
  Sender: FDA-Public Use
  Company Number: None

PATIENT
  Sex: Female
  Weight: 54.4316 kg

DRUGS (1)
  1. LEVAQUIN [Suspect]
     Indication: SINUSITIS
     Dosage: 750 MG TABLET   1 TABLET PER DAY  PO
     Route: 048
     Dates: start: 20080129, end: 20080131

REACTIONS (10)
  - BONE PAIN [None]
  - CRYING [None]
  - DRUG INEFFECTIVE [None]
  - PAIN IN EXTREMITY [None]
  - PRURITUS [None]
  - RASH ERYTHEMATOUS [None]
  - RASH GENERALISED [None]
  - TENDON PAIN [None]
  - THERAPEUTIC AGENT TOXICITY [None]
  - URTICARIA [None]
